FAERS Safety Report 15094894 (Version 1)
Quarter: 2018Q3

REPORT INFORMATION
  Report Type: Report from Study
  Country: None (occurrence: US)
  Receive Date: 20180701
  Receipt Date: 20180701
  Transmission Date: 20181010
  Serious: Yes (Other)
  Sender: FDA-Public Use
  Company Number: US-ABBVIE-18K-163-2405309-00

PATIENT
  Sex: Female

DRUGS (1)
  1. HUMIRA [Suspect]
     Active Substance: ADALIMUMAB
     Indication: CROHN^S DISEASE
     Route: 058
     Dates: start: 20180130

REACTIONS (3)
  - Gastrointestinal stenosis [Recovered/Resolved]
  - Rash [Not Recovered/Not Resolved]
  - Adhesion [Unknown]

NARRATIVE: CASE EVENT DATE: 2018
